FAERS Safety Report 11295452 (Version 1)
Quarter: 2015Q3

REPORT INFORMATION
  Report Type: Spontaneous
  Country: US (occurrence: None)
  Receive Date: 20150722
  Receipt Date: 20150722
  Transmission Date: 20151125
  Serious: Yes (Hospitalization)
  Sender: FDA-Public Use
  Company Number: None

PATIENT
  Age: 66 Year
  Sex: Male

DRUGS (1)
  1. EXENATIDE [Suspect]
     Active Substance: EXENATIDE
     Indication: DIABETES MELLITUS
     Route: 058
     Dates: start: 20061019, end: 20101102

REACTIONS (5)
  - Pancreatitis [None]
  - Hepatic enzyme increased [None]
  - Polydipsia [None]
  - Polyuria [None]
  - Acute kidney injury [None]

NARRATIVE: CASE EVENT DATE: 20101102
